FAERS Safety Report 4609858-4 (Version None)
Quarter: 2005Q1

REPORT INFORMATION
  Report Type: 
  Country: None (occurrence: None)
  Receive Date: 20050314
  Receipt Date: 20050314
  Transmission Date: 20050727
  Serious: Yes (Life-Threatening, Hospitalization, Disabling)
  Sender: FDA-Public Use
  Company Number: None

PATIENT
  Age: 56 Year
  Sex: Male
  Weight: 95.2554 kg

DRUGS (2)
  1. NARDIL [Suspect]
     Indication: ANXIETY
     Dosage: 90MG  DAY  ORAL
     Route: 048
     Dates: start: 19860919, end: 20050329
  2. NARDIL [Suspect]
     Indication: DEPRESSION
     Dosage: 90MG  DAY  ORAL
     Route: 048
     Dates: start: 19860919, end: 20050329

REACTIONS (5)
  - BRAIN DEATH [None]
  - DRUG WITHDRAWAL SYNDROME [None]
  - LOSS OF EMPLOYMENT [None]
  - MENTAL DISORDER [None]
  - PHARMACEUTICAL PRODUCT COMPLAINT [None]
